FAERS Safety Report 13177616 (Version 2)
Quarter: 2017Q3

REPORT INFORMATION
  Report Type: Report from Study
  Country: US (occurrence: US)
  Receive Date: 20170201
  Receipt Date: 20170731
  Transmission Date: 20171127
  Serious: No
  Sender: FDA-Public Use
  Company Number: US-EXELIXIS-CABO-16006680

PATIENT
  Sex: Male

DRUGS (11)
  1. NEURONTIN [Concomitant]
     Active Substance: GABAPENTIN
  2. XARELTO [Concomitant]
     Active Substance: RIVAROXABAN
  3. SIMVASTATIN. [Concomitant]
     Active Substance: SIMVASTATIN
  4. PLAVIX [Concomitant]
     Active Substance: CLOPIDOGREL BISULFATE
  5. CABOMETYX [Suspect]
     Active Substance: CABOZANTINIB S-MALATE
     Indication: RENAL CANCER
     Dosage: 60 MG, QD
     Route: 048
     Dates: start: 20160618, end: 20160708
  6. FENTANYL. [Concomitant]
     Active Substance: FENTANYL
  7. INLYTA [Concomitant]
     Active Substance: AXITINIB
  8. RAPAFLO [Concomitant]
     Active Substance: SILODOSIN
  9. CABOMETYX [Suspect]
     Active Substance: CABOZANTINIB S-MALATE
     Dosage: 40 MG, QD
     Route: 048
     Dates: start: 20160720
  10. PROCHLORPERAZINE. [Concomitant]
     Active Substance: PROCHLORPERAZINE
  11. ZOCOR [Concomitant]
     Active Substance: SIMVASTATIN

REACTIONS (7)
  - Skin ulcer [Unknown]
  - Nasal congestion [Unknown]
  - Dry skin [Unknown]
  - Skin fissures [Unknown]
  - Rash generalised [Unknown]
  - Oral discomfort [Unknown]
  - Diarrhoea [Unknown]
